FAERS Safety Report 7028769-0 (Version None)
Quarter: 2010Q3

REPORT INFORMATION
  Report Type: 
  Country: None (occurrence: None)
  Receive Date: 20100830
  Receipt Date: 20100816
  Transmission Date: 20110219
  Serious: Yes (Hospitalization)
  Sender: FDA-Public Use
  Company Number: AEUSA201000295

PATIENT
  Age: 2 Year
  Sex: Female
  Weight: 14 kg

DRUGS (5)
  1. GAMUNEX [Suspect]
     Indication: KAWASAKI'S DISEASE
     Dosage: 28 GM; IV
     Route: 042
     Dates: start: 20100812, end: 20100815
  2. CETRIAXONE [Concomitant]
  3. IBUPROFEN [Concomitant]
  4. TYLENOL REGULAR [Concomitant]
  5. UNSPECIFIED INTRAVENOUS FLUIDS [Concomitant]

REACTIONS (1)
  - WHITE BLOOD CELL COUNT INCREASED [None]
